FAERS Safety Report 4501900-4 (Version None)
Quarter: 2004Q4

REPORT INFORMATION
  Report Type: 
  Country: None (occurrence: None)
  Receive Date: 20041115
  Receipt Date: 20041115
  Transmission Date: 20050328
  Serious: Yes (Hospitalization)
  Sender: FDA-Public Use
  Company Number: None

PATIENT
  Age: 49 Year
  Sex: Male
  Weight: 115.7 kg

DRUGS (14)
  1. ACETAMINOPHEN [Suspect]
  2. MAXZIDE [Concomitant]
  3. GATIFLOXACIN [Concomitant]
  4. IBUPROFEN [Concomitant]
  5. CEPHALEXIN [Concomitant]
  6. BACITRACIN [Concomitant]
  7. TRAMADOL [Concomitant]
  8. RANITIDINE [Concomitant]
  9. DICLOXACILLIN [Concomitant]
  10. CETRIZINE HCL [Concomitant]
  11. NIFEDIPINE [Concomitant]
  12. TERAZODIN [Concomitant]
  13. TRIAMCINOLONE OINT [Concomitant]
  14. HYDROXYZINE PAMOATE [Concomitant]

REACTIONS (4)
  - DIZZINESS [None]
  - DYSARTHRIA [None]
  - NAUSEA [None]
  - VOMITING [None]
